FAERS Safety Report 20538555 (Version 1)
Quarter: 2022Q1

REPORT INFORMATION
  Report Type: Spontaneous
  Country: BR (occurrence: BR)
  Receive Date: 20220302
  Receipt Date: 20220302
  Transmission Date: 20220423
  Serious: Yes (Hospitalization)
  Sender: FDA-Public Use
  Company Number: BR-BAYER-2021-200898

PATIENT
  Age: 80 Year
  Sex: Male

DRUGS (2)
  1. RIVAROXABAN [Suspect]
     Active Substance: RIVAROXABAN
     Indication: Peripheral arterial occlusive disease
     Dosage: 2.5 MG, BID
     Route: 048
  2. ASPIRIN [Concomitant]
     Active Substance: ASPIRIN
     Indication: Peripheral arterial occlusive disease
     Dosage: 100 MG, QD
     Route: 048

REACTIONS (2)
  - Loss of consciousness [Unknown]
  - Carotid artery occlusion [Unknown]
